FAERS Safety Report 4521624-7 (Version None)
Quarter: 2004Q4

REPORT INFORMATION
  Report Type: 
  Country: None (occurrence: None)
  Receive Date: 20041208
  Receipt Date: 20041208
  Transmission Date: 20050328
  Serious: Yes (Life-Threatening)
  Sender: FDA-Public Use
  Company Number: None

PATIENT
  Sex: Female
  Weight: 48.5349 kg

DRUGS (16)
  1. DILTIAZEM CD    180 MG   ? [Suspect]
     Indication: ATRIAL FLUTTER
     Dosage: 1  DAILY   ORAL
     Route: 048
     Dates: start: 20041008, end: 20041116
  2. SPIRONOLACTONE [Concomitant]
  3. TORSEMIDE [Concomitant]
  4. ISOSORBIDE MONONITRATE [Concomitant]
  5. DIGOXIN [Concomitant]
  6. WARFARIN SODIUM [Concomitant]
  7. PREVACID [Concomitant]
  8. SYNTHROID [Concomitant]
  9. CALCIUM WITH VITAMIN D [Concomitant]
  10. MULTI-VITAMIN [Concomitant]
  11. LEXAPRO [Concomitant]
  12. MORPHINE SULFATE [Concomitant]
  13. DOCUSATE [Concomitant]
  14. SENNA [Concomitant]
  15. PREDNISONE [Concomitant]
  16. OXYGEN [Concomitant]

REACTIONS (4)
  - ORAL MUCOSAL BLISTERING [None]
  - RASH ERYTHEMATOUS [None]
  - RASH GENERALISED [None]
  - RASH PRURITIC [None]
